FAERS Safety Report 6756219-8 (Version None)
Quarter: 2010Q2

REPORT INFORMATION
  Report Type: 
  Country: None (occurrence: None)
  Receive Date: 20100604
  Receipt Date: 20100528
  Transmission Date: 20101027
  Serious: Yes (Death)
  Sender: FDA-Public Use
  Company Number: PHHY2010MX24442

PATIENT
  Age: 94 Year
  Sex: Female

DRUGS (1)
  1. FEMARA [Suspect]
     Indication: METASTASES TO LUNG
     Dosage: 1 (TABLET) 2.5 MG, QD
     Route: 048
     Dates: start: 20070801

REACTIONS (2)
  - MALIGNANT NEOPLASM PROGRESSION [None]
  - RESPIRATORY ARREST [None]
